FAERS Safety Report 8167266-6 (Version None)
Quarter: 2012Q1

REPORT INFORMATION
  Report Type: 
  Country: None (occurrence: None)
  Receive Date: 20120227
  Receipt Date: 20120215
  Transmission Date: 20120608
  Serious: Yes (Other)
  Sender: FDA-Public Use
  Company Number: JP-PFIZER INC-2012048588

PATIENT
  Age: 76 Year
  Sex: Female

DRUGS (3)
  1. CELECOXIB [Suspect]
     Indication: ARTHRALGIA
     Dosage: 200 MG, DAILY
     Route: 048
     Dates: start: 20120202, end: 20120209
  2. NORVASC [Suspect]
     Dosage: 2.5 MG, DAILY
     Route: 048
  3. ENALAPRIL MALEATE [Suspect]
     Dosage: 10 MG, DAILY
     Route: 048

REACTIONS (1)
  - STEVENS-JOHNSON SYNDROME [None]
